FAERS Safety Report 9080006 (Version 1)
Quarter: 2013Q1

REPORT INFORMATION
  Report Type: Spontaneous
  Country: ES (occurrence: ES)
  Receive Date: 20130130
  Receipt Date: 20130130
  Transmission Date: 20140127
  Serious: Yes (Death)
  Sender: FDA-Public Use
  Company Number: ES-UCBSA-076758

PATIENT
  Age: 30 Year
  Sex: Male

DRUGS (2)
  1. VIMPAT [Suspect]
     Indication: EPILEPSY
     Dosage: ONE WEEK OF THERAPY
     Route: 048
     Dates: end: 201301
  2. TEGRETOL [Concomitant]
     Indication: EPILEPSY
     Route: 048
     Dates: end: 201301

REACTIONS (1)
  - Death [Fatal]
